FAERS Safety Report 14716211 (Version 1)
Quarter: 2018Q2

REPORT INFORMATION
  Report Type: Spontaneous
  Country: DE (occurrence: DE)
  Receive Date: 20180404
  Receipt Date: 20180404
  Transmission Date: 20180711
  Serious: Yes (Other)
  Sender: FDA-Public Use
  Company Number: DE-MYLANLABS-2018M1020444

PATIENT
  Age: 8 Year
  Sex: Male

DRUGS (7)
  1. AZATHIOPRINE. [Suspect]
     Active Substance: AZATHIOPRINE
     Indication: OPTIC NEUROPATHY
     Dosage: 100 MG
  2. METHYLPREDNISOLONE. [Concomitant]
     Active Substance: METHYLPREDNISOLONE
     Indication: IMMUNOSUPPRESSION
  3. METHYLPREDNISOLONE. [Concomitant]
     Active Substance: METHYLPREDNISOLONE
     Indication: OPTIC NEUROPATHY
     Dosage: 20 MG, QD
     Route: 042
  4. PREDNISOLONE. [Concomitant]
     Active Substance: PREDNISOLONE
     Indication: IMMUNOSUPPRESSION
     Dosage: UNK
     Route: 048
  5. METHOTREXATE. [Concomitant]
     Active Substance: METHOTREXATE
     Indication: OPTIC NEUROPATHY
     Dosage: UNK
  6. AZATHIOPRINE. [Suspect]
     Active Substance: AZATHIOPRINE
     Indication: IMMUNOSUPPRESSION
     Dosage: 150 MG, QD
  7. PREDNISOLONE. [Concomitant]
     Active Substance: PREDNISOLONE
     Indication: OPTIC NEUROPATHY
     Dosage: 10 MG
     Route: 048

REACTIONS (6)
  - Off label use [Unknown]
  - Anaemia [Unknown]
  - Drug ineffective for unapproved indication [Unknown]
  - Thrombocytopenia [Unknown]
  - Drug intolerance [Unknown]
  - Leukopenia [Unknown]
